FAERS Safety Report 4618263-6 (Version None)
Quarter: 2005Q1

REPORT INFORMATION
  Report Type: 
  Country: None (occurrence: None)
  Receive Date: 20050324
  Receipt Date: 20050311
  Transmission Date: 20050727
  Serious: Yes (Hospitalization)
  Sender: FDA-Public Use
  Company Number: MK200503-0161-1

PATIENT
  Age: 73 Year
  Sex: Male

DRUGS (9)
  1. ANAFRANIL [Suspect]
     Indication: DEPRESSION
     Dosage: 125 MG, QD
     Dates: start: 20041110, end: 20050129
  2. FLECAINE [Concomitant]
  3. FORLAX [Concomitant]
  4. LORAZEPAM [Concomitant]
  5. VITAMIN B-12 [Concomitant]
  6. GLUCOPHAGE [Concomitant]
  7. KARDEGIC [Concomitant]
  8. SOLIAN [Concomitant]
  9. ZESTRIL [Concomitant]

REACTIONS (4)
  - CONFUSIONAL STATE [None]
  - INAPPROPRIATE ANTIDIURETIC HORMONE SECRETION [None]
  - MAJOR DEPRESSION [None]
  - MUTISM [None]
